FAERS Safety Report 15451418 (Version 3)
Quarter: 2018Q4

REPORT INFORMATION
  Report Type: Report from Study
  Country: US (occurrence: HU)
  Receive Date: 20181001
  Receipt Date: 20181022
  Transmission Date: 20190204
  Serious: Yes (Death, Other)
  Sender: FDA-Public Use
  Company Number: US-SUNOVION-2017SUN005612

PATIENT

DRUGS (7)
  1. INDACATEROL AND GLYCOPYRROLATE [Suspect]
     Active Substance: GLYCOPYRROLATE\INDACATEROL MALEATE
     Indication: CHRONIC OBSTRUCTIVE PULMONARY DISEASE
     Dosage: 1 DF, QD
     Route: 055
     Dates: start: 20171213
  2. ROSUVASTATIN. [Suspect]
     Active Substance: ROSUVASTATIN
     Indication: PRODUCT USED FOR UNKNOWN INDICATION
     Route: 065
  3. PANTOPRAZOLE [Suspect]
     Active Substance: PANTOPRAZOLE
     Indication: PRODUCT USED FOR UNKNOWN INDICATION
     Route: 065
  4. CLEXANE [Concomitant]
     Active Substance: ENOXAPARIN SODIUM
     Indication: PRODUCT USED FOR UNKNOWN INDICATION
     Route: 065
  5. ROSUVASTATIN. [Suspect]
     Active Substance: ROSUVASTATIN
     Route: 065
  6. NEBIVOLOL. [Suspect]
     Active Substance: NEBIVOLOL
     Indication: PRODUCT USED FOR UNKNOWN INDICATION
     Route: 065
  7. PANTOPRAZOLE [Suspect]
     Active Substance: PANTOPRAZOLE
     Route: 065

REACTIONS (15)
  - Chronic obstructive pulmonary disease [Unknown]
  - Urine output decreased [Unknown]
  - Chronic kidney disease [Fatal]
  - Chest pain [Unknown]
  - Atrial fibrillation [Unknown]
  - Gastric disorder [Unknown]
  - Dizziness [Unknown]
  - Oedema peripheral [Unknown]
  - Pulmonary oedema [Unknown]
  - Chest discomfort [Unknown]
  - Hypertension [Unknown]
  - Dyspnoea [Not Recovered/Not Resolved]
  - Cardiac failure [Fatal]
  - Acute myocardial infarction [Fatal]
  - Ascites [Unknown]

NARRATIVE: CASE EVENT DATE: 201712
